FAERS Safety Report 5711287-7 (Version None)
Quarter: 2008Q2

REPORT INFORMATION
  Report Type: 
  Country: None (occurrence: None)
  Receive Date: 20080418
  Receipt Date: 20080418
  Transmission Date: 20081010
  Serious: Yes (Life-Threatening, Hospitalization)
  Sender: FDA-Public Use
  Company Number: None

PATIENT
  Age: 73 Year
  Sex: Male

DRUGS (1)
  1. NPH ILETIN II [Suspect]
     Indication: DIABETES MELLITUS
     Dates: start: 20080112, end: 20080116

REACTIONS (3)
  - DYSKINESIA [None]
  - EYE ROLLING [None]
  - HYPOGLYCAEMIA [None]
